FAERS Safety Report 7810977-X (Version None)
Quarter: 2011Q4

REPORT INFORMATION
  Report Type: 
  Country: None (occurrence: None)
  Receive Date: 20111013
  Receipt Date: 20111005
  Transmission Date: 20120403
  Serious: Yes (Hospitalization, Other)
  Sender: FDA-Public Use
  Company Number: JP-JNJFOC-20110701541

PATIENT
  Sex: Female
  Weight: 65 kg

DRUGS (15)
  1. GOLIMUMAB [Suspect]
     Indication: RHEUMATOID ARTHRITIS
     Route: 058
     Dates: start: 20090121, end: 20110608
  2. INTENURSE [Concomitant]
     Indication: BACK PAIN
     Route: 062
     Dates: start: 20110511
  3. CRESTOR [Concomitant]
     Indication: HYPERLIPIDAEMIA
     Route: 048
     Dates: start: 20090805
  4. RIMATIL [Concomitant]
     Indication: RHEUMATOID ARTHRITIS
     Route: 048
     Dates: start: 20110706
  5. REBAMIPIDE [Concomitant]
     Route: 048
     Dates: start: 20100707
  6. INTEBAN SP [Concomitant]
     Indication: RHEUMATOID ARTHRITIS
     Dates: start: 20100805
  7. KETOTEN [Concomitant]
     Indication: SEASONAL ALLERGY
     Route: 031
     Dates: start: 20110323, end: 20110706
  8. METHOTREXATE [Concomitant]
     Indication: RHEUMATOID ARTHRITIS
     Route: 048
     Dates: start: 20060215
  9. LEVOCABASTINE HYDROCHLORIDE [Concomitant]
     Indication: SEASONAL ALLERGY
     Route: 045
     Dates: start: 20110323, end: 20110706
  10. PLACEBO [Suspect]
     Indication: RHEUMATOID ARTHRITIS
     Route: 058
     Dates: start: 20080806, end: 20081224
  11. FOLIC ACID [Concomitant]
     Route: 048
     Dates: start: 20060215
  12. ISODINE GARGLE [Concomitant]
     Indication: PROPHYLAXIS
     Route: 049
     Dates: start: 20090902
  13. TALION [Concomitant]
     Indication: SEASONAL ALLERGY
     Route: 048
     Dates: start: 20110323, end: 20110706
  14. CIMETIDINE [Concomitant]
     Route: 048
     Dates: start: 20021007
  15. PREDNISOLONE [Concomitant]
     Indication: RHEUMATOID ARTHRITIS
     Route: 048
     Dates: start: 20100415

REACTIONS (1)
  - UTERINE CANCER [None]
